FAERS Safety Report 4325089-X (Version None)
Quarter: 2004Q1

REPORT INFORMATION
  Report Type: 
  Country: None (occurrence: None)
  Receive Date: 20040323
  Receipt Date: 20040216
  Transmission Date: 20041129
  Serious: No
  Sender: FDA-Public Use
  Company Number: USA040259520

PATIENT
  Age: 84 Year
  Sex: Male

DRUGS (5)
  1. CIALIS [Suspect]
     Dosage: 10 MG
     Dates: start: 20040214
  2. HYTRIN [Concomitant]
  3. VIOXX [Concomitant]
  4. ASPIRIN [Concomitant]
  5. NEXIUM (ESOMEPRAZOLE)C [Concomitant]

REACTIONS (1)
  - DRUG INEFFECTIVE [None]
